FAERS Safety Report 15903401 (Version 1)
Quarter: 2019Q1

REPORT INFORMATION
  Report Type: Spontaneous
  Country: ML (occurrence: ML)
  Receive Date: 20190202
  Receipt Date: 20190202
  Transmission Date: 20190417
  Serious: Yes (Death)
  Sender: FDA-Public Use
  Company Number: PHHY2019ML024892

PATIENT
  Age: 3 Month
  Sex: Male

DRUGS (1)
  1. CURAM [Suspect]
     Active Substance: AMOXICILLIN\CLAVULANATE POTASSIUM
     Indication: PNEUMONITIS
     Dosage: 100 MG, TID (6 DOSES 3 TIMES PER DAY)
     Route: 048
     Dates: start: 20181113, end: 20181120

REACTIONS (1)
  - Death [Fatal]
